FAERS Safety Report 14763204 (Version 1)
Quarter: 2018Q2

REPORT INFORMATION
  Report Type: Spontaneous
  Country: US (occurrence: US)
  Receive Date: 20180409
  Receipt Date: 20180409
  Transmission Date: 20180711
  Serious: No
  Sender: FDA-Public Use
  Company Number: None

PATIENT
  Age: 63 Year
  Sex: Female

DRUGS (1)
  1. REPATHA [Suspect]
     Active Substance: EVOLOCUMAB

REACTIONS (7)
  - Abdominal pain [None]
  - Musculoskeletal pain [None]
  - Back pain [None]
  - Arthralgia [None]
  - Pain [None]
  - Injection site pain [None]
  - Myalgia [None]

NARRATIVE: CASE EVENT DATE: 20180409
